FAERS Safety Report 6309126-9 (Version None)
Quarter: 2009Q3

REPORT INFORMATION
  Report Type: 
  Country: None (occurrence: None)
  Receive Date: 20090811
  Receipt Date: 20090728
  Transmission Date: 20100115
  Serious: Yes (Life-Threatening, Hospitalization)
  Sender: FDA-Public Use
  Company Number: 2009002276

PATIENT
  Age: 69 Year
  Sex: Female

DRUGS (4)
  1. ERLOTINIB / PLACEBO(ERLOTINIB HCI) (TABLET) (ERLOTINIB HCI) [Suspect]
     Indication: NON-SMALL CELL LUNG CANCER METASTATIC
     Dosage: ORAL
     Route: 048
     Dates: start: 20080612, end: 20081107
  2. DOCETAXEL [Concomitant]
  3. METOCLOPRAMIDE [Concomitant]
  4. DEXAMETHASONE TAB [Concomitant]

REACTIONS (1)
  - PULMONARY EMBOLISM [None]
